FAERS Safety Report 23728147 (Version 1)
Quarter: 2024Q2

REPORT INFORMATION
  Report Type: Spontaneous
  Country: US (occurrence: None)
  Receive Date: 20240410
  Receipt Date: 20240410
  Transmission Date: 20240716
  Serious: No
  Sender: FDA-Public Use
  Company Number: None

PATIENT
  Age: 81 Year
  Sex: Female

DRUGS (11)
  1. IMATINIB MESYLATE [Suspect]
     Active Substance: IMATINIB MESYLATE
     Indication: Chronic myeloid leukaemia
     Dosage: FREQUENCY : DAILY;?
     Route: 048
     Dates: start: 20171020
  2. ARANESP [Concomitant]
     Active Substance: DARBEPOETIN ALFA
  3. ASPIRIN [Concomitant]
     Active Substance: ASPIRIN
  4. B12 COMPLNCE KIT [Concomitant]
  5. CALTRATE [Concomitant]
     Active Substance: CALCIUM CARBONATE
  6. CLOROTIAZ [Concomitant]
  7. FUROSEMIDE [Concomitant]
     Active Substance: FUROSEMIDE
  8. IRON COMPLEX [Concomitant]
  9. LEVOTHYROXINE [Concomitant]
     Active Substance: LEVOTHYROXINE\LEVOTHYROXINE SODIUM
  10. LOSARTAN POTASSIUM [Concomitant]
     Active Substance: LOSARTAN POTASSIUM
  11. METOPROLOL TARTRATE [Concomitant]
     Active Substance: METOPROLOL TARTRATE

REACTIONS (2)
  - Renal disorder [None]
  - Therapy interrupted [None]

NARRATIVE: CASE EVENT DATE: 20240326
